FAERS Safety Report 22316285 (Version 2)
Quarter: 2023Q2

REPORT INFORMATION
  Report Type: Spontaneous
  Country: NL (occurrence: NL)
  Receive Date: 20230513
  Receipt Date: 20230517
  Transmission Date: 20230721
  Serious: Yes (Death, Hospitalization, Other)
  Sender: FDA-Public Use
  Company Number: NL-LRB-00879236

PATIENT
  Sex: Female
  Weight: 63.5 kg

DRUGS (12)
  1. CIPROFLOXACIN [Suspect]
     Active Substance: CIPROFLOXACIN
     Indication: Urinary tract infection
     Dosage: 500 MILLIGRAM, TWO TIMES A DAY (1 PIECE 2X A DAY)
     Route: 065
     Dates: start: 20230329, end: 20230331
  2. CELLCEPT [Suspect]
     Active Substance: MYCOPHENOLATE MOFETIL
     Indication: Autoimmune encephalopathy
     Dosage: 1000 MILLIGRAM, TWO TIMES A DAY(2 PIECES TWICE A DAY)
     Route: 065
     Dates: start: 20221230, end: 20230331
  3. CELLCEPT [Suspect]
     Active Substance: MYCOPHENOLATE MOFETIL
     Indication: Prophylaxis
  4. ALENDRONIC ACID [Concomitant]
     Active Substance: ALENDRONIC ACID
     Indication: Product used for unknown indication
     Dosage: 70 MILLIGRAM TABLET, 70 MG (MILLIGRAM)
     Route: 065
  5. ALPRAZOLAM [Concomitant]
     Active Substance: ALPRAZOLAM
     Indication: Restlessness
     Dosage: 0.25 MILLIGRAM (TABLET, 0,25 MG (MILLIGRAM))
     Route: 065
     Dates: start: 202204
  6. ALPRAZOLAM [Concomitant]
     Active Substance: ALPRAZOLAM
     Indication: Anxiety
  7. CALCIUM CARBONATE\CHOLECALCIFEROL [Concomitant]
     Active Substance: CALCIUM CARBONATE\CHOLECALCIFEROL
     Indication: Product used for unknown indication
     Dosage: UNK (CHEWABLE TABLET, 1.25 G (GRAM)/800 UNITS)
     Route: 065
  8. FLUOXETINE [Concomitant]
     Active Substance: FLUOXETINE HYDROCHLORIDE
     Indication: Depression
     Dosage: 20 MILLIGRAM (CAPSULE, 20 MG (MILLIGRAM))
     Route: 065
     Dates: start: 1990
  9. IBUPROFEN [Concomitant]
     Active Substance: IBUPROFEN
     Indication: Product used for unknown indication
     Dosage: 400 MILLIGRAM (CAPSULE, 400 MG (MILLIGRAM)
     Route: 065
  10. PANTOPRAZOLE SODIUM [Concomitant]
     Active Substance: PANTOPRAZOLE SODIUM
     Indication: Product used for unknown indication
     Dosage: 40 MILLIGRAM (GASTRO-RESISTANT TABLET, 40 MG (MILLIGRAMS)
     Route: 065
  11. ACETAMINOPHEN [Concomitant]
     Active Substance: ACETAMINOPHEN
     Indication: Product used for unknown indication
     Dosage: 500 MILLIGRAM (TABLET, 500 MG (MILLIGRAM)
     Route: 065
  12. SUMATRIPTAN [Concomitant]
     Active Substance: SUMATRIPTAN
     Indication: Product used for unknown indication
     Dosage: 50 MILLIGRAM (TABLET, 50 MG (MILLIGRAM)
     Route: 065

REACTIONS (3)
  - Completed suicide [Fatal]
  - Suicidal behaviour [Not Recovered/Not Resolved]
  - Confusional state [Unknown]
